FAERS Safety Report 20089348 (Version 4)
Quarter: 2022Q1

REPORT INFORMATION
  Report Type: Report from Study
  Country: US (occurrence: US)
  Receive Date: 20211119
  Receipt Date: 20220304
  Transmission Date: 20220423
  Serious: No
  Sender: FDA-Public Use
  Company Number: US-NOVARTISTESTPH-NVSC2021US264249

PATIENT
  Age: 61 Year
  Sex: Female

DRUGS (1)
  1. COSENTYX [Suspect]
     Active Substance: SECUKINUMAB
     Indication: Product used for unknown indication
     Dosage: UNK, OTHER (UNKNOWN) (150 MG/ML X2)
     Route: 058
     Dates: start: 20211115

REACTIONS (3)
  - Device malfunction [Unknown]
  - Incorrect dose administered by device [Unknown]
  - Drug ineffective [Unknown]

NARRATIVE: CASE EVENT DATE: 20211115
